FAERS Safety Report 12422049 (Version 1)
Quarter: 2016Q2

REPORT INFORMATION
  Report Type: Spontaneous
  Country: CA (occurrence: CA)
  Receive Date: 20160531
  Receipt Date: 20160531
  Transmission Date: 20160815
  Serious: Yes (Death, Disabling, Other)
  Sender: FDA-Public Use
  Company Number: CA-APOTEX-2016AP008780

PATIENT
  Age: 60 Year
  Sex: Male

DRUGS (7)
  1. APO-QUETIAPINE [Suspect]
     Active Substance: QUETIAPINE
     Indication: PRODUCT USED FOR UNKNOWN INDICATION
     Dosage: UNK, UNKNOWN
     Route: 065
  2. APO-CHLORPROMAZINE [Suspect]
     Active Substance: CHLORPROMAZINE
     Dosage: 50 MG, TID
     Route: 065
  3. TRIHEXYPHENIDYL [Suspect]
     Active Substance: TRIHEXYPHENIDYL
     Dosage: 2 MG, QID
     Route: 065
  4. APO-CHLORPROMAZINE [Suspect]
     Active Substance: CHLORPROMAZINE
     Indication: BIPOLAR DISORDER
     Dosage: 75 MG, TID
     Route: 065
  5. TRIHEXYPHENIDYL [Suspect]
     Active Substance: TRIHEXYPHENIDYL
     Indication: PARKINSONISM
     Dosage: 2 MG, TID
     Route: 065
  6. APO-LITHIUM CARBONATE [Suspect]
     Active Substance: LITHIUM CARBONATE
     Indication: BIPOLAR DISORDER
     Dosage: 300 MG, TID
     Route: 065
  7. APO-BENZTROPINE [Suspect]
     Active Substance: BENZTROPINE
     Indication: BIPOLAR DISORDER
     Dosage: UNK UNK, UNKNOWN
     Route: 065

REACTIONS (9)
  - Parkinsonism [Fatal]
  - Unmasking of previously unidentified disease [Fatal]
  - Dyskinesia [Fatal]
  - Dyspepsia [None]
  - Dementia Alzheimer^s type [Fatal]
  - Confusional state [Recovered/Resolved]
  - Cerebral amyloid angiopathy [Fatal]
  - Hallucination [Recovered/Resolved]
  - Tardive dyskinesia [Fatal]
